FAERS Safety Report 4305427-4 (Version None)
Quarter: 2004Q1

REPORT INFORMATION
  Report Type: 
  Country: None (occurrence: None)
  Receive Date: 20040226
  Receipt Date: 20031121
  Transmission Date: 20041129
  Serious: No
  Sender: FDA-Public Use
  Company Number: US-BRISTOL-MYERS SQUIBB COMPANY-12442679

PATIENT

DRUGS (1)
  1. TAXOL [Suspect]
     Dosage: 1.6 MG/ML

REACTIONS (1)
  - MEDICATION ERROR [None]
